FAERS Safety Report 16416350 (Version 3)
Quarter: 2019Q3

REPORT INFORMATION
  Report Type: Spontaneous
  Country: US (occurrence: US)
  Receive Date: 20190611
  Receipt Date: 20190703
  Transmission Date: 20191004
  Serious: Yes (Other)
  Sender: FDA-Public Use
  Company Number: US-STRONGBRIDGE BIOPHARMA-2019-STR-000141

PATIENT
  Age: 48 Year
  Sex: Female

DRUGS (1)
  1. KEVEYIS [Suspect]
     Active Substance: DICHLORPHENAMIDE
     Indication: FAMILIAL PERIODIC PARALYSIS
     Dosage: 50 MG, BID
     Route: 048
     Dates: start: 20190522

REACTIONS (12)
  - Nausea [Not Recovered/Not Resolved]
  - Increased bronchial secretion [Not Recovered/Not Resolved]
  - Confusional state [Not Recovered/Not Resolved]
  - Disease recurrence [Unknown]
  - Pruritus [Not Recovered/Not Resolved]
  - Paraesthesia [Recovered/Resolved]
  - Muscle spasms [Not Recovered/Not Resolved]
  - Head discomfort [Recovering/Resolving]
  - Pain [Unknown]
  - Hiccups [Recovered/Resolved]
  - Apnoea [Unknown]
  - Mental status changes [Not Recovered/Not Resolved]

NARRATIVE: CASE EVENT DATE: 20190530
